FAERS Safety Report 8104452-5 (Version None)
Quarter: 2012Q1

REPORT INFORMATION
  Report Type: 
  Country: None (occurrence: None)
  Receive Date: 20120201
  Receipt Date: 20120126
  Transmission Date: 20120608
  Serious: Yes (Other)
  Sender: FDA-Public Use
  Company Number: GXKR2010US08784

PATIENT
  Age: 28 Year
  Sex: Female

DRUGS (6)
  1. SCOPOLAMINE [Suspect]
     Indication: PROPHYLAXIS OF NAUSEA AND VOMITING
     Route: 062
  2. DEXAMETHASONE [Concomitant]
  3. MIDAZOLAM [Concomitant]
     Indication: NERVE BLOCK
  4. CITALOPRAM HYDROBROMIDE [Suspect]
     Indication: DEPRESSION
     Route: 065
  5. PROPOFOL [Concomitant]
     Indication: ANAESTHESIA
     Route: 042
  6. ONDANSETRON [Concomitant]

REACTIONS (4)
  - ANTICHOLINERGIC SYNDROME [None]
  - UNRESPONSIVE TO STIMULI [None]
  - TACHYCARDIA [None]
  - MYDRIASIS [None]
